FAERS Safety Report 7035810-8 (Version None)
Quarter: 2010Q4

REPORT INFORMATION
  Report Type: 
  Country: None (occurrence: None)
  Receive Date: 20101008
  Receipt Date: 20100930
  Transmission Date: 20110411
  Serious: Yes (Hospitalization, Other)
  Sender: FDA-Public Use
  Company Number: US-NAPPMUNDI-USA-2010-0044573

PATIENT
  Sex: Male

DRUGS (2)
  1. OXYCONTIN [Suspect]
     Indication: PAIN
     Dosage: 40 MG, 5/DAY
  2. OXYCODONE HCL [Suspect]
     Indication: PAIN
     Dosage: 30 MG, TID

REACTIONS (7)
  - DIZZINESS [None]
  - GASTROINTESTINAL MUCOSAL EXFOLIATION [None]
  - IRRITABILITY [None]
  - LOSS OF CONSCIOUSNESS [None]
  - MEMORY IMPAIRMENT [None]
  - ORAL MUCOSAL EXFOLIATION [None]
  - TONGUE EXFOLIATION [None]
